FAERS Safety Report 6955360-4 (Version None)
Quarter: 2010Q3

REPORT INFORMATION
  Report Type: 
  Country: None (occurrence: None)
  Receive Date: 20100830
  Receipt Date: 20100817
  Transmission Date: 20110219
  Serious: Yes (Other)
  Sender: FDA-Public Use
  Company Number: IN-ELI_LILLY_AND_COMPANY-IN201008007257

PATIENT
  Age: 30 Year
  Sex: Male

DRUGS (1)
  1. TADALAFIL [Suspect]
     Indication: ERECTILE DYSFUNCTION
     Dosage: 10 MG, DAILY (1/D)

REACTIONS (3)
  - ANGIOEDEMA [None]
  - HEADACHE [None]
  - NASAL CONGESTION [None]
